FAERS Safety Report 8368017-2 (Version None)
Quarter: 2012Q2

REPORT INFORMATION
  Report Type: 
  Country: None (occurrence: None)
  Receive Date: 20120517
  Receipt Date: 20120508
  Transmission Date: 20120825
  Serious: Yes (Hospitalization)
  Sender: FDA-Public Use
  Company Number: US-BAXTER-2012BAX005110

PATIENT
  Sex: Female

DRUGS (3)
  1. TISSEEL VH [Suspect]
  2. TISSEEL VH [Suspect]
     Indication: HYSTERECTOMY
  3. TISSEEL VH [Suspect]

REACTIONS (1)
  - INTESTINAL OBSTRUCTION [None]
